FAERS Safety Report 5401873-6 (Version None)
Quarter: 2007Q3

REPORT INFORMATION
  Report Type: 
  Country: None (occurrence: None)
  Receive Date: 20070731
  Receipt Date: 20070723
  Transmission Date: 20080115
  Serious: Yes (Other)
  Sender: FDA-Public Use
  Company Number: US-ELI_LILLY_AND_COMPANY-US200706002608

PATIENT
  Age: 61 Year
  Sex: Male

DRUGS (4)
  1. BYETTA [Suspect]
     Indication: TYPE 2 DIABETES MELLITUS
     Dosage: 10 UG, 2/D
     Route: 058
     Dates: start: 20070612
  2. BYETTA [Suspect]
     Dosage: 10 UG, 2/D
     Route: 058
     Dates: start: 20070401, end: 20070609
  3. BYETTA [Suspect]
     Dosage: 5 UG, UNK
     Dates: start: 20070201, end: 20070401
  4. METFORMIN HCL [Concomitant]

REACTIONS (5)
  - CARCINOMA IN SITU OF BLADDER [None]
  - DYSURIA [None]
  - POLLAKIURIA [None]
  - RASH PRURITIC [None]
  - URINE COLOUR ABNORMAL [None]
